FAERS Safety Report 13740543 (Version 1)
Quarter: 2017Q3

REPORT INFORMATION
  Report Type: Spontaneous
  Country: US (occurrence: US)
  Receive Date: 20170710
  Receipt Date: 20170710
  Transmission Date: 20171127
  Serious: Yes (Life-Threatening, Hospitalization, Other)
  Sender: FDA-Public Use
  Company Number: None

PATIENT
  Age: 76 Year
  Sex: Female
  Weight: 56.4 kg

DRUGS (2)
  1. OFIRMEV [Concomitant]
     Active Substance: ACETAMINOPHEN
  2. ACETAMINOPHEN 1000 MG/100 ML [Suspect]
     Active Substance: ACETAMINOPHEN
     Indication: PAIN
     Dosage: ?          OTHER DOSE:MG;OTHER FREQUENCY:ONCE;?
     Route: 040
     Dates: start: 20170627, end: 20170629

REACTIONS (3)
  - Muscle abscess [None]
  - Hypotension [None]
  - Procedural haemorrhage [None]

NARRATIVE: CASE EVENT DATE: 20170627
